FAERS Safety Report 8183533-4 (Version None)
Quarter: 2012Q1

REPORT INFORMATION
  Report Type: 
  Country: None (occurrence: None)
  Receive Date: 20120305
  Receipt Date: 20120222
  Transmission Date: 20120608
  Serious: Yes (Hospitalization)
  Sender: FDA-Public Use
  Company Number: US-ELI_LILLY_AND_COMPANY-US201007004806

PATIENT
  Sex: Female
  Weight: 47.075 kg

DRUGS (29)
  1. FORTEO [Suspect]
     Indication: OSTEOPOROSIS
     Dosage: 20 UG, QD
     Route: 058
     Dates: start: 20100706
  2. FORTEO [Suspect]
     Dosage: 20 UG, QD
     Route: 058
  3. MULTI-VITAMIN [Concomitant]
     Dosage: 1 DF, UNK
     Route: 048
  4. FORTEO [Suspect]
     Dosage: 20 UG, QD
     Route: 058
  5. CALCIUM [Concomitant]
     Dosage: UNK
  6. FORTEO [Suspect]
     Dosage: 20 UG, QD
     Route: 058
  7. DILTIAZEM HCL [Concomitant]
     Indication: BLOOD PRESSURE ABNORMAL
  8. OXYGEN [Concomitant]
     Dosage: 2 L, QD
  9. VENTOLIN HFA [Concomitant]
     Dosage: 90 UG, OTHER
  10. DILTIA XT [Concomitant]
     Dosage: 240 MG, UNK
     Route: 048
  11. PREDNISONE TAB [Concomitant]
     Dosage: 5 MG, QD
  12. ADVAIR DISKUS 100/50 [Concomitant]
     Dosage: 500 DF, BID
     Route: 055
  13. ZITHROMAX [Concomitant]
     Dosage: 250 MG, QD
  14. OMEPRAZOLE [Concomitant]
     Dosage: 40 MG, UNK
     Route: 048
  15. TYLENOL                                 /SCH/ [Concomitant]
     Dosage: 1 DF, BID
  16. TYLENOL-500 [Concomitant]
     Dosage: 1300 MG, QD
  17. ADVAIR DISKUS 100/50 [Concomitant]
     Dosage: 1 DF, BID
  18. ALBUTEROL SULFATE AND IPRATROPIUM BROMIDE [Concomitant]
     Dosage: UNK UNK, QID
  19. PRILOSEC [Concomitant]
     Dosage: UNK, BID
  20. CALCIUM [Concomitant]
     Dosage: 600 MG, EACH MORNING
     Route: 048
  21. CALCIUM [Concomitant]
     Dosage: 500 MG, BID
  22. MELATONIN [Concomitant]
     Dosage: 5 MG, UNK
     Route: 048
  23. ZOCOR [Concomitant]
     Dosage: 20 UNK, UNK
     Route: 048
  24. VIACTIV                                 /USA/ [Concomitant]
     Dosage: 1 DF, QD
     Route: 048
  25. ALBUTEROL SULFATE [Concomitant]
     Dosage: UNK, OTHER
  26. FORTEO [Suspect]
     Dosage: 20 UG, QD
     Route: 058
     Dates: start: 20110618
  27. SIMVASTATIN [Concomitant]
  28. VITAMIN E [Concomitant]
     Dosage: 1 UNK, UNK
     Route: 048
  29. GLUCOSAMINE CHONDROITIN [Concomitant]
     Dosage: 2 DF, UNK
     Route: 048

REACTIONS (14)
  - PAIN [None]
  - ARTHRALGIA [None]
  - SPINAL COLUMN STENOSIS [None]
  - SPINAL OSTEOARTHRITIS [None]
  - VISUAL IMPAIRMENT [None]
  - BLOOD CALCIUM INCREASED [None]
  - PAIN IN EXTREMITY [None]
  - COUGH [None]
  - NEPHROLITHIASIS [None]
  - INJECTION SITE HAEMATOMA [None]
  - CONSTIPATION [None]
  - PYREXIA [None]
  - RADICULOPATHY [None]
  - DIZZINESS [None]
